FAERS Safety Report 6832000-6 (Version None)
Quarter: 2010Q3

REPORT INFORMATION
  Report Type: 
  Country: None (occurrence: None)
  Receive Date: 20100712
  Receipt Date: 20100630
  Transmission Date: 20110219
  Serious: Yes (Other)
  Sender: FDA-Public Use
  Company Number: US-ELI_LILLY_AND_COMPANY-US201005001331

PATIENT
  Age: 79 Year
  Sex: Female
  Weight: 67.574 kg

DRUGS (2)
  1. EFFIENT [Suspect]
     Indication: STENT PLACEMENT
     Dosage: 10 MG, UNK
     Dates: start: 20100420, end: 20100503
  2. ASPIRIN [Concomitant]
     Dosage: 81 MG, UNKNOWN

REACTIONS (3)
  - ECCHYMOSIS [None]
  - GASTROINTESTINAL EROSION [None]
  - LOWER GASTROINTESTINAL HAEMORRHAGE [None]
